FAERS Safety Report 6115835-7 (Version None)
Quarter: 2009Q1

REPORT INFORMATION
  Report Type: 
  Country: None (occurrence: None)
  Receive Date: 20090311
  Receipt Date: 20090306
  Transmission Date: 20090719
  Serious: Yes (Hospitalization)
  Sender: FDA-Public Use
  Company Number: POMP-1000510

PATIENT
  Age: 12 Month
  Sex: Female
  Weight: 8.4 kg

DRUGS (1)
  1. MYOZYME [Suspect]
     Indication: GLYCOGEN STORAGE DISEASE TYPE II
     Dosage: 150 MG, Q2W, INTRAVENOUS
     Route: 042
     Dates: start: 20080701

REACTIONS (2)
  - BACTERIAL TRACHEITIS [None]
  - SERRATIA INFECTION [None]
